FAERS Safety Report 23658648 (Version 1)
Quarter: 2024Q1

REPORT INFORMATION
  Report Type: Report from Study
  Country: ES (occurrence: ES)
  Receive Date: 20240321
  Receipt Date: 20240321
  Transmission Date: 20240409
  Serious: Yes (Other)
  Sender: FDA-Public Use
  Company Number: ES-JNJFOC-20240329880

PATIENT

DRUGS (2)
  1. BOSENTAN [Suspect]
     Active Substance: BOSENTAN
     Indication: Neoplasm
     Route: 048
  2. LURBINECTEDIN [Interacting]
     Active Substance: LURBINECTEDIN
     Indication: Neoplasm
     Route: 065

REACTIONS (13)
  - Neutropenia [Unknown]
  - Leukopenia [Unknown]
  - Thrombocytopenia [Unknown]
  - Anaemia [Unknown]
  - Gamma-glutamyltransferase increased [Unknown]
  - Lymphopenia [Unknown]
  - Alanine aminotransferase increased [Unknown]
  - Aspartate aminotransferase increased [Unknown]
  - Blood alkaline phosphatase increased [Unknown]
  - Blood creatinine increased [Unknown]
  - Nausea [Unknown]
  - Drug interaction [Unknown]
  - Off label use [Unknown]
